FAERS Safety Report 8211763-1 (Version None)
Quarter: 2012Q1

REPORT INFORMATION
  Report Type: 
  Country: None (occurrence: None)
  Receive Date: 20120315
  Receipt Date: 20120315
  Transmission Date: 20120608
  Serious: Yes (Other)
  Sender: FDA-Public Use
  Company Number: US-PFIZER INC-2012064929

PATIENT
  Age: 41 Year
  Sex: Male
  Weight: 115.65 kg

DRUGS (6)
  1. MARIJUANA [Suspect]
     Indication: DRUG ABUSE
     Dosage: UNK
     Dates: end: 20070222
  2. CATAPRES [Concomitant]
     Dosage: UNK
     Dates: end: 20070225
  3. VALIUM [Suspect]
     Dosage: 20 MG, DAILY
     Route: 048
     Dates: end: 20070226
  4. MORPHINE SULFATE [Suspect]
     Dosage: 450 MG
     Dates: end: 20070227
  5. AVINZA [Suspect]
     Dosage: 120 MG, DAILY
     Route: 048
     Dates: end: 20070227
  6. OXYCONTIN [Suspect]
     Indication: BACK PAIN
     Dosage: 80 MG, 480MG TO 600 MG DAILY
     Route: 048
     Dates: start: 20060401, end: 20070222

REACTIONS (4)
  - DRUG DEPENDENCE [None]
  - DRUG WITHDRAWAL SYNDROME [None]
  - INJURY [None]
  - SUBSTANCE ABUSE [None]
